FAERS Safety Report 10443262 (Version 3)
Quarter: 2015Q3

REPORT INFORMATION
  Report Type: Spontaneous
  Country: US (occurrence: US)
  Receive Date: 20140910
  Receipt Date: 20150928
  Transmission Date: 20151125
  Serious: Yes (Other)
  Sender: FDA-Public Use
  Company Number: US-ROCHE-1458944

PATIENT
  Age: 31 Year
  Sex: Female

DRUGS (1)
  1. ERIVEDGE [Suspect]
     Active Substance: VISMODEGIB
     Indication: NEOPLASM MALIGNANT
     Route: 065

REACTIONS (2)
  - Cholelithiasis [Unknown]
  - Exposure via father [Unknown]

NARRATIVE: CASE EVENT DATE: 201408
